FAERS Safety Report 9799920 (Version 1)
Quarter: 2014Q1

REPORT INFORMATION
  Report Type: Spontaneous
  Country: US (occurrence: US)
  Receive Date: 20140106
  Receipt Date: 20140106
  Transmission Date: 20141002
  Serious: No
  Sender: FDA-Public Use
  Company Number: US-PFIZER INC-2014002686

PATIENT
  Sex: 0

DRUGS (4)
  1. VENLAFAXINE HCL [Suspect]
     Indication: DEPRESSION
     Dosage: UNK
  2. VENLAFAXINE HCL [Suspect]
     Indication: ANXIETY
  3. VENLAFAXINE HYDROCHLORIDE [Suspect]
     Indication: DEPRESSION
     Dosage: UNK
  4. VENLAFAXINE HYDROCHLORIDE [Suspect]
     Indication: ANXIETY

REACTIONS (1)
  - Drug ineffective [Unknown]
